FAERS Safety Report 9611184 (Version 9)
Quarter: 2015Q1

REPORT INFORMATION
  Report Type: Report from Study
  Country: CA (occurrence: CA)
  Receive Date: 20131009
  Receipt Date: 20150121
  Transmission Date: 20150721
  Serious: Yes (Other)
  Sender: FDA-Public Use
  Company Number: CA-ROCHE-1237211

PATIENT
  Age: 67 Year
  Sex: Female
  Weight: 97 kg

DRUGS (9)
  1. METHOTREXATE [Concomitant]
     Active Substance: METHOTREXATE
  2. ADVIL [Concomitant]
     Active Substance: IBUPROFEN
  3. ACTEMRA [Suspect]
     Active Substance: TOCILIZUMAB
     Indication: RHEUMATOID ARTHRITIS
     Route: 042
     Dates: start: 20121213
  4. ARAVA [Concomitant]
     Active Substance: LEFLUNOMIDE
  5. DETROL [Concomitant]
     Active Substance: TOLTERODINE TARTRATE
  6. ACTEMRA [Suspect]
     Active Substance: TOCILIZUMAB
     Route: 042
     Dates: start: 20141111
  7. PERCOCET [Concomitant]
     Active Substance: ACETAMINOPHEN\OXYCODONE HYDROCHLORIDE
     Dosage: PRN
     Route: 065
  8. FOLIC ACID. [Concomitant]
     Active Substance: FOLIC ACID
  9. COVERSYL [Concomitant]
     Active Substance: PERINDOPRIL

REACTIONS (12)
  - Joint effusion [Not Recovered/Not Resolved]
  - Fatigue [Unknown]
  - Arthralgia [Unknown]
  - Gait disturbance [Unknown]
  - Weight increased [Unknown]
  - Unevaluable event [Unknown]
  - Myalgia [Unknown]
  - Drug dose omission [Unknown]
  - Tooth extraction [Unknown]
  - Pain [Recovering/Resolving]
  - Arthralgia [Not Recovered/Not Resolved]
  - Arthropathy [Recovered/Resolved]

NARRATIVE: CASE EVENT DATE: 2013
